FAERS Safety Report 4476917-9 (Version None)
Quarter: 2004Q4

REPORT INFORMATION
  Report Type: 
  Country: None (occurrence: None)
  Receive Date: 20041013
  Receipt Date: 20040923
  Transmission Date: 20050328
  Serious: Yes (Hospitalization)
  Sender: FDA-Public Use
  Company Number: DE_040914347

PATIENT
  Sex: Female

DRUGS (3)
  1. FORTEO [Suspect]
     Indication: OSTEOPOROSIS
     Dosage: 20 MG/1 DAY
     Dates: start: 20031106, end: 20040825
  2. FORTEO [Suspect]
     Indication: SPINAL FRACTURE
     Dosage: 20 MG/1 DAY
     Dates: start: 20031106, end: 20040825
  3. COLECALCIFEROL [Concomitant]

REACTIONS (4)
  - HEPATIC FIBROSIS [None]
  - HEPATIC INFECTION [None]
  - HEPATITIS [None]
  - PARATHYROID TUMOUR BENIGN [None]
